FAERS Safety Report 17650921 (Version 3)
Quarter: 2020Q4

REPORT INFORMATION
  Report Type: Spontaneous
  Country: US (occurrence: US)
  Receive Date: 20200409
  Receipt Date: 20201001
  Transmission Date: 20210113
  Serious: No
  Sender: FDA-Public Use
  Company Number: US-KARYOPHARM-2020KPT000325

PATIENT

DRUGS (2)
  1. XPOVIO [Suspect]
     Active Substance: SELINEXOR
     Indication: PLASMA CELL MYELOMA
     Dosage: 80 MG, WEEKLY
     Route: 048
     Dates: start: 20200321, end: 20200910
  2. VARUBI [Concomitant]
     Active Substance: ROLAPITANT
     Indication: PLASMA CELL MYELOMA
     Dosage: 180 MG, 1X/2 WEEKS
     Route: 048
     Dates: start: 20200321

REACTIONS (9)
  - Thrombocytopenia [Unknown]
  - Dyspnoea exertional [Unknown]
  - Weight decreased [Unknown]
  - Vision blurred [Unknown]
  - Leukopenia [Unknown]
  - Photopsia [Unknown]
  - Decreased appetite [Recovering/Resolving]
  - Eye pain [Unknown]
  - Nausea [Unknown]

NARRATIVE: CASE EVENT DATE: 202003
